FAERS Safety Report 5846772-0 (Version None)
Quarter: 2008Q3

REPORT INFORMATION
  Report Type: 
  Country: None (occurrence: None)
  Receive Date: 20080815
  Receipt Date: 20080808
  Transmission Date: 20090109
  Serious: Yes (Hospitalization, Disabling, Other)
  Sender: FDA-Public Use
  Company Number: US-MERCK-0705USA01446

PATIENT
  Age: 77 Year
  Sex: Female

DRUGS (6)
  1. FOSAMAX [Suspect]
     Indication: WRIST FRACTURE
     Route: 048
     Dates: start: 20030901, end: 20051001
  2. FOSAMAX [Suspect]
     Indication: OSTEOPOROSIS
     Route: 048
     Dates: start: 20030901, end: 20051001
  3. THEOPHYLLINE [Concomitant]
     Route: 065
  4. PREDNISONE [Suspect]
     Indication: ASTHMA
     Route: 065
     Dates: start: 19770101
  5. SINGULAIR [Concomitant]
     Route: 065
  6. ALBUTEROL [Concomitant]
     Route: 065

REACTIONS (28)
  - ASTHMA [None]
  - AZOTAEMIA [None]
  - BRONCHITIS [None]
  - CELLULITIS [None]
  - CHRONIC OBSTRUCTIVE PULMONARY DISEASE [None]
  - COMPRESSION FRACTURE [None]
  - DEHYDRATION [None]
  - EXOSTOSIS [None]
  - FAECES DISCOLOURED [None]
  - GAMMOPATHY [None]
  - HERPES ZOSTER [None]
  - HYPOTENSION [None]
  - INSOMNIA [None]
  - LEUKOCYTOSIS [None]
  - MUSCULAR WEAKNESS [None]
  - MYALGIA [None]
  - NODAL ARRHYTHMIA [None]
  - OSTEOMYELITIS [None]
  - OSTEONECROSIS [None]
  - PNEUMONIA PNEUMOCOCCAL [None]
  - SEPSIS [None]
  - STREPTOCOCCAL BACTERAEMIA [None]
  - TACHYCARDIA [None]
  - TEMPORAL ARTERITIS [None]
  - TOOTH ABSCESS [None]
  - TYPE 1 DIABETES MELLITUS [None]
  - UPPER RESPIRATORY TRACT INFECTION [None]
  - URINARY TRACT INFECTION [None]
